FAERS Safety Report 16962685 (Version 1)
Quarter: 2019Q4

REPORT INFORMATION
  Report Type: Spontaneous
  Country: US (occurrence: US)
  Receive Date: 20191025
  Receipt Date: 20191025
  Transmission Date: 20200122
  Serious: Yes (Hospitalization)
  Sender: FDA-Public Use
  Company Number: US-JNJFOC-20191021184

PATIENT
  Age: 12 Year
  Sex: Male
  Weight: 79.45 kg

DRUGS (2)
  1. STELARA [Suspect]
     Active Substance: USTEKINUMAB
     Indication: CROHN^S DISEASE
     Route: 042
     Dates: start: 20190820
  2. STELARA [Suspect]
     Active Substance: USTEKINUMAB
     Route: 058
     Dates: start: 20190924

REACTIONS (10)
  - Urticaria [Recovered/Resolved]
  - Oedema [Unknown]
  - Oropharyngeal discomfort [Unknown]
  - Product use issue [Unknown]
  - Dysphagia [Unknown]
  - Arthralgia [Unknown]
  - Off label use [Unknown]
  - Erythema [Unknown]
  - Throat irritation [Unknown]
  - Abdominal tenderness [Unknown]
